FAERS Safety Report 9122823 (Version 1)
Quarter: 2013Q1

REPORT INFORMATION
  Report Type: Spontaneous
  Country: US (occurrence: US)
  Receive Date: 20130227
  Receipt Date: 20130227
  Transmission Date: 20140127
  Serious: No
  Sender: FDA-Public Use
  Company Number: US-GLAXOSMITHKLINE-A0960231A

PATIENT
  Age: 47 Year
  Sex: Female

DRUGS (1)
  1. VALTREX [Suspect]
     Indication: CHRONIC FATIGUE SYNDROME
     Dosage: 1CAPL FOUR TIMES PER DAY
     Route: 048
     Dates: start: 201101

REACTIONS (2)
  - Off label use [Unknown]
  - Therapeutic response unexpected [Unknown]
